FAERS Safety Report 4861616-1 (Version None)
Quarter: 2005Q4

REPORT INFORMATION
  Report Type: 
  Country: None (occurrence: None)
  Receive Date: 20051216
  Receipt Date: 20051209
  Transmission Date: 20060501
  Serious: Yes (Other)
  Sender: FDA-Public Use
  Company Number: 2005166789

PATIENT
  Age: 73 Year
  Sex: Female
  Weight: 47.1741 kg

DRUGS (3)
  1. LIPITOR [Suspect]
     Indication: BLOOD CHOLESTEROL INCREASED
     Dosage: 20 MG (20 MG, 1 IN 2 D), ORAL
     Route: 048
  2. PRILOSEC [Concomitant]
  3. FOSAMAX [Concomitant]

REACTIONS (2)
  - JAW FRACTURE [None]
  - POST PROCEDURAL COMPLICATION [None]
